FAERS Safety Report 5142974-X (Version None)
Quarter: 2006Q4

REPORT INFORMATION
  Report Type: 
  Country: None (occurrence: None)
  Receive Date: 20061103
  Receipt Date: 20061018
  Transmission Date: 20070319
  Serious: Yes (Hospitalization)
  Sender: FDA-Public Use
  Company Number: US-BAYER-200616080BWH

PATIENT
  Age: 50 Year
  Sex: Male

DRUGS (3)
  1. SORAFENIB [Suspect]
     Indication: METASTATIC MALIGNANT MELANOMA
     Route: 048
     Dates: start: 20060201, end: 20060501
  2. DTIC-DOME [Suspect]
     Indication: METASTATIC MALIGNANT MELANOMA
     Dates: start: 20060201, end: 20060501
  3. ALEVE [Concomitant]

REACTIONS (5)
  - CARDIO-RESPIRATORY ARREST [None]
  - LEUKOCYTOSIS [None]
  - NAUSEA [None]
  - PYREXIA [None]
  - VOMITING [None]
